FAERS Safety Report 7591567-3 (Version None)
Quarter: 2011Q3

REPORT INFORMATION
  Report Type: 
  Country: None (occurrence: None)
  Receive Date: 20110706
  Receipt Date: 20090101
  Transmission Date: 20111222
  Serious: Yes (Hospitalization, Other)
  Sender: FDA-Public Use
  Company Number: US-BAYER-200841754NA

PATIENT
  Age: 72 Year
  Sex: Male
  Weight: 103 kg

DRUGS (20)
  1. ETOMIDATE [Concomitant]
     Dosage: UNK
     Dates: start: 20060120
  2. PAVULON [Concomitant]
     Dosage: UNK
     Dates: start: 20060120
  3. PEPCID [Concomitant]
     Dosage: 20 MG, UNK
     Route: 042
     Dates: start: 20060120
  4. TRASYLOL [Suspect]
     Indication: CORONARY ARTERY BYPASS
     Dosage: UNK
     Route: 042
     Dates: start: 20060120, end: 20060120
  5. MANNITOL [Concomitant]
     Dosage: 25 G, UNK
     Route: 042
     Dates: start: 20060120
  6. ANCEF [Concomitant]
     Dosage: UNK
     Route: 042
     Dates: start: 20060120
  7. CRESTOR [Concomitant]
     Dosage: 40 MG, UNK
     Route: 048
  8. ACETYLSALICYLIC ACID SRT [Concomitant]
     Dosage: 81 MG, UNK
     Route: 048
  9. DIOVAN [Concomitant]
     Dosage: 320 MG, UNK
     Route: 048
  10. LIDOCAINE [Concomitant]
     Dosage: UNK
     Dates: start: 20060120
  11. CARDIZEM [Concomitant]
     Dosage: 25 MG, UNK
     Route: 042
     Dates: start: 20060120
  12. AMARYL [Concomitant]
     Dosage: 4 MG, UNK
     Route: 048
  13. FENTANYL [Concomitant]
     Dosage: UNK
     Dates: start: 20060120
  14. NOREPINEPHRINE BITARTRATE [Concomitant]
     Dosage: UNK
     Dates: start: 20060120
  15. VERSED [Concomitant]
     Dosage: 1 MG, UNK
     Route: 042
     Dates: start: 20060120
  16. DECADRON [Concomitant]
     Dosage: UNK
     Route: 042
     Dates: start: 20060120
  17. ACTOS [Concomitant]
     Dosage: 30 MG, UNK
     Route: 048
  18. BENADRYL [Concomitant]
     Dosage: 50 MG, UNK
     Route: 042
     Dates: start: 20060120
  19. LASIX [Concomitant]
     Dosage: 40 MG, UNK
     Route: 042
     Dates: start: 20060120
  20. DIAZEPAM [Concomitant]
     Dosage: 5 MG, UNK
     Route: 048

REACTIONS (7)
  - PAIN [None]
  - MOBILITY DECREASED [None]
  - INJURY [None]
  - UNEVALUABLE EVENT [None]
  - CEREBROVASCULAR ACCIDENT [None]
  - RENAL FAILURE [None]
  - DEPRESSION [None]
